FAERS Safety Report 7419178-0 (Version None)
Quarter: 2011Q2

REPORT INFORMATION
  Report Type: 
  Country: None (occurrence: None)
  Receive Date: 20110415
  Receipt Date: 20110321
  Transmission Date: 20111010
  Serious: No
  Sender: FDA-Public Use
  Company Number: US-B.I. PHARMACEUTICALS,INC./RIDGEFIELD-2011-BP-08791BP

PATIENT
  Age: 77 Year
  Sex: Female

DRUGS (13)
  1. ZYPREXA [Concomitant]
     Indication: DEMENTIA ALZHEIMER'S TYPE
     Dosage: 5 MG
  2. VITAMINS [Concomitant]
     Indication: SUPPLEMENTATION THERAPY
     Dosage: 81 MG
  3. ASPIRIN [Concomitant]
     Indication: CARDIAC DISORDER
     Dosage: 81 MG
  4. PRADAXA [Suspect]
     Indication: ATRIAL FIBRILLATION
     Dosage: 300 MG
     Route: 048
     Dates: start: 20110214
  5. ARICEPT [Concomitant]
     Indication: DEMENTIA ALZHEIMER'S TYPE
     Dosage: 10 MG
  6. XANAX [Concomitant]
     Indication: ANXIETY
  7. HYDROCHLOROTHIAZIDE [Concomitant]
     Indication: HYPERTENSION
  8. LEVOTHYROXINE SODIUM [Concomitant]
     Indication: HYPOTHYROIDISM
     Dosage: 25 MG
  9. CITALOPRAM HYDROBROMIDE [Concomitant]
     Indication: DEPRESSION
     Dosage: 40 MG
  10. HYDROCHLOROTHIAZIDE [Concomitant]
     Indication: SWELLING
     Dosage: 25 MG
  11. ACTONEL [Concomitant]
     Indication: OSTEOPOROSIS
  12. NAMENDA [Concomitant]
     Indication: DEMENTIA ALZHEIMER'S TYPE
     Dosage: 20 MG
  13. PRAVASTATIN [Concomitant]
     Indication: BLOOD CHOLESTEROL INCREASED
     Dosage: 40 MG

REACTIONS (4)
  - AGGRESSION [None]
  - MEMORY IMPAIRMENT [None]
  - IRRITABILITY [None]
  - FLAT AFFECT [None]
